FAERS Safety Report 5406838-6 (Version None)
Quarter: 2007Q3

REPORT INFORMATION
  Report Type: 
  Country: None (occurrence: None)
  Receive Date: 20070807
  Receipt Date: 20070727
  Transmission Date: 20080115
  Serious: Yes (Death, Hospitalization)
  Sender: FDA-Public Use
  Company Number: US-JNJFOC-20070706692

PATIENT
  Sex: Male
  Weight: 78.02 kg

DRUGS (52)
  1. REMICADE [Suspect]
     Route: 042
  2. REMICADE [Suspect]
     Route: 042
  3. REMICADE [Suspect]
     Route: 042
  4. REMICADE [Suspect]
     Route: 042
  5. REMICADE [Suspect]
     Route: 042
  6. REMICADE [Suspect]
     Route: 042
  7. REMICADE [Suspect]
     Route: 042
  8. REMICADE [Suspect]
     Route: 042
  9. REMICADE [Suspect]
     Route: 042
  10. REMICADE [Suspect]
     Route: 042
  11. REMICADE [Suspect]
     Route: 042
  12. REMICADE [Suspect]
     Route: 042
  13. REMICADE [Suspect]
     Route: 042
  14. REMICADE [Suspect]
     Route: 042
  15. REMICADE [Suspect]
     Route: 042
  16. REMICADE [Suspect]
     Route: 042
  17. REMICADE [Suspect]
     Route: 042
  18. REMICADE [Suspect]
     Route: 042
  19. REMICADE [Suspect]
     Route: 042
  20. REMICADE [Suspect]
     Route: 042
  21. REMICADE [Suspect]
     Route: 042
  22. REMICADE [Suspect]
     Route: 042
  23. REMICADE [Suspect]
     Route: 042
  24. REMICADE [Suspect]
     Route: 042
  25. REMICADE [Suspect]
     Route: 042
  26. REMICADE [Suspect]
     Route: 042
  27. REMICADE [Suspect]
     Route: 042
  28. REMICADE [Suspect]
     Route: 042
  29. REMICADE [Suspect]
     Route: 042
  30. REMICADE [Suspect]
     Route: 042
  31. REMICADE [Suspect]
     Route: 042
  32. REMICADE [Suspect]
     Route: 042
  33. REMICADE [Suspect]
     Route: 042
  34. REMICADE [Suspect]
     Route: 042
  35. REMICADE [Suspect]
     Route: 042
  36. REMICADE [Suspect]
     Route: 042
  37. REMICADE [Suspect]
     Route: 042
  38. REMICADE [Suspect]
     Route: 042
  39. REMICADE [Suspect]
     Route: 042
  40. REMICADE [Suspect]
     Route: 042
  41. REMICADE [Suspect]
     Route: 042
  42. REMICADE [Suspect]
     Route: 042
  43. REMICADE [Suspect]
     Route: 042
  44. REMICADE [Suspect]
     Route: 042
  45. REMICADE [Suspect]
     Route: 042
  46. REMICADE [Suspect]
     Route: 042
  47. REMICADE [Suspect]
     Route: 042
  48. REMICADE [Suspect]
     Indication: CROHN'S DISEASE
     Route: 042
  49. AZATHIOPRINE [Concomitant]
     Indication: CROHN'S DISEASE
  50. PREDNISONE TAB [Concomitant]
     Indication: CROHN'S DISEASE
  51. ANTIHISTAMINES [Concomitant]
     Indication: CROHN'S DISEASE
  52. STEROIDS [Concomitant]
     Indication: CROHN'S DISEASE

REACTIONS (5)
  - CHOLANGITIS SCLEROSING [None]
  - DIABETES MELLITUS [None]
  - HEPATIC CIRRHOSIS [None]
  - RENAL FAILURE ACUTE [None]
  - SPINAL FRACTURE [None]
